FAERS Safety Report 11792518 (Version 1)
Quarter: 2015Q4

REPORT INFORMATION
  Report Type: Report from Study
  Country: US (occurrence: US)
  Receive Date: 20151202
  Receipt Date: 20151202
  Transmission Date: 20160305
  Serious: Yes (Death, Other)
  Sender: FDA-Public Use
  Company Number: US-AMGEN-USASL2015126585

PATIENT
  Age: 52 Year
  Sex: Female

DRUGS (1)
  1. BLINCYTO [Suspect]
     Active Substance: BLINATUMOMAB
     Indication: ACUTE LYMPHOCYTIC LEUKAEMIA
     Dosage: UNK
     Route: 065
     Dates: start: 20151105, end: 20151109

REACTIONS (3)
  - Infection [Unknown]
  - Hepatic failure [Fatal]
  - Pancytopenia [Unknown]

NARRATIVE: CASE EVENT DATE: 201511
